FAERS Safety Report 16177666 (Version 1)
Quarter: 2019Q2

REPORT INFORMATION
  Report Type: Spontaneous
  Country: CN (occurrence: CN)
  Receive Date: 20190410
  Receipt Date: 20190410
  Transmission Date: 20190711
  Serious: Yes (Other)
  Sender: FDA-Public Use
  Company Number: CN-ROCHE-2288178

PATIENT
  Age: 53 Year
  Sex: Male

DRUGS (12)
  1. ERBITUX [Concomitant]
     Active Substance: CETUXIMAB
     Dosage: INITIAL DOSE
     Route: 065
     Dates: start: 20150714, end: 20151112
  2. ELOXATIN [Concomitant]
     Active Substance: OXALIPLATIN
     Route: 065
     Dates: start: 201601, end: 201612
  3. LEUCOVORIN CALCIUM. [Concomitant]
     Active Substance: LEUCOVORIN CALCIUM
     Route: 065
     Dates: start: 20150714, end: 20151112
  4. FLUOROURACIL. [Concomitant]
     Active Substance: FLUOROURACIL
     Route: 065
     Dates: start: 201601, end: 201612
  5. FLUOROURACIL. [Concomitant]
     Active Substance: FLUOROURACIL
     Route: 065
     Dates: start: 20150714, end: 20151112
  6. XELODA [Suspect]
     Active Substance: CAPECITABINE
     Indication: RECTAL CANCER
     Route: 065
     Dates: start: 20160525, end: 20160629
  7. XELODA [Suspect]
     Active Substance: CAPECITABINE
     Indication: METASTASES TO LIVER
  8. ERBITUX [Concomitant]
     Active Substance: CETUXIMAB
     Route: 065
     Dates: start: 201601, end: 201612
  9. LEUCOVORIN CALCIUM. [Concomitant]
     Active Substance: LEUCOVORIN CALCIUM
     Route: 065
     Dates: start: 201601, end: 201612
  10. ERBITUX [Concomitant]
     Active Substance: CETUXIMAB
     Indication: RECTAL CANCER
     Route: 065
     Dates: start: 20160429, end: 20160518
  11. ERBITUX [Concomitant]
     Active Substance: CETUXIMAB
     Indication: METASTASES TO LIVER
     Route: 065
     Dates: start: 20160611, end: 20161219
  12. ELOXATIN [Concomitant]
     Active Substance: OXALIPLATIN
     Route: 065
     Dates: start: 20150714, end: 20151112

REACTIONS (1)
  - Cholecystitis chronic [Unknown]
